FAERS Safety Report 21478362 (Version 1)
Quarter: 2022Q4

REPORT INFORMATION
  Report Type: Spontaneous
  Country: US (occurrence: US)
  Receive Date: 20221019
  Receipt Date: 20221019
  Transmission Date: 20230113
  Serious: Yes (Other)
  Sender: FDA-Public Use
  Company Number: US-PFIZER INC-202201227825

PATIENT
  Age: 53 Year
  Sex: Male
  Weight: 170.4 kg

DRUGS (25)
  1. LEUCOVORIN CALCIUM [Suspect]
     Active Substance: LEUCOVORIN CALCIUM
     Dosage: UNK
     Dates: start: 20210419, end: 20210629
  2. LEUCOVORIN CALCIUM [Suspect]
     Active Substance: LEUCOVORIN CALCIUM
     Dosage: UNK
     Dates: end: 20210713
  3. LEUCOVORIN CALCIUM [Suspect]
     Active Substance: LEUCOVORIN CALCIUM
     Dosage: UNK
     Dates: end: 20210720
  4. LEUCOVORIN CALCIUM [Suspect]
     Active Substance: LEUCOVORIN CALCIUM
     Dosage: UNK
     Dates: end: 20210726
  5. LEUCOVORIN CALCIUM [Suspect]
     Active Substance: LEUCOVORIN CALCIUM
     Dosage: UNK
     Dates: start: 20210803
  6. OXALIPLATIN [Suspect]
     Active Substance: OXALIPLATIN
     Dosage: 85 MG/M2
     Dates: start: 20210419, end: 20210629
  7. OXALIPLATIN [Suspect]
     Active Substance: OXALIPLATIN
     Dosage: 80 MG/M2
     Dates: start: 20210713
  8. OXALIPLATIN [Suspect]
     Active Substance: OXALIPLATIN
     Dosage: UNK
     Dates: end: 20210720
  9. OXALIPLATIN [Suspect]
     Active Substance: OXALIPLATIN
     Dosage: UNK
     Dates: end: 20210726
  10. OXALIPLATIN [Suspect]
     Active Substance: OXALIPLATIN
     Dosage: UNK
     Dates: start: 20210803, end: 202108
  11. IRINOTECAN HYDROCHLORIDE [Suspect]
     Active Substance: IRINOTECAN HYDROCHLORIDE
     Dosage: 150 MG/M2
     Dates: start: 20210419, end: 20210629
  12. IRINOTECAN HYDROCHLORIDE [Suspect]
     Active Substance: IRINOTECAN HYDROCHLORIDE
     Dosage: 130 MG/M2
     Dates: start: 20210713
  13. IRINOTECAN HYDROCHLORIDE [Suspect]
     Active Substance: IRINOTECAN HYDROCHLORIDE
     Dosage: UNK
     Dates: end: 20210720
  14. IRINOTECAN HYDROCHLORIDE [Suspect]
     Active Substance: IRINOTECAN HYDROCHLORIDE
     Dosage: UNK
     Dates: end: 20210726
  15. IRINOTECAN HYDROCHLORIDE [Suspect]
     Active Substance: IRINOTECAN HYDROCHLORIDE
     Dosage: UNK
     Dates: start: 20210803
  16. BEVACIZUMAB [Suspect]
     Active Substance: BEVACIZUMAB
     Dosage: UNK
     Dates: start: 20210419, end: 20210629
  17. BEVACIZUMAB [Suspect]
     Active Substance: BEVACIZUMAB
     Dosage: UNK
     Dates: end: 20210713
  18. BEVACIZUMAB [Suspect]
     Active Substance: BEVACIZUMAB
     Dosage: UNK
     Dates: end: 20210720
  19. BEVACIZUMAB [Suspect]
     Active Substance: BEVACIZUMAB
     Dosage: UNK
     Dates: end: 20210726
  20. BEVACIZUMAB [Suspect]
     Active Substance: BEVACIZUMAB
     Dosage: UNK
     Dates: start: 20210803
  21. FLUOROURACIL [Suspect]
     Active Substance: FLUOROURACIL
     Dosage: 2000 MG/M2
     Dates: start: 20210419, end: 20210629
  22. FLUOROURACIL [Suspect]
     Active Substance: FLUOROURACIL
     Dosage: 1800 MG/M2
     Dates: start: 20210713
  23. FLUOROURACIL [Suspect]
     Active Substance: FLUOROURACIL
     Dosage: UNK
     Dates: end: 20210720
  24. FLUOROURACIL [Suspect]
     Active Substance: FLUOROURACIL
     Dosage: UNK
     Dates: end: 20210726
  25. FLUOROURACIL [Suspect]
     Active Substance: FLUOROURACIL
     Dosage: UNK
     Dates: start: 20210803

REACTIONS (8)
  - Myelosuppression [Unknown]
  - Pancytopenia [Unknown]
  - Thrombocytopenia [Unknown]
  - Neutropenia [Unknown]
  - Full blood count abnormal [Unknown]
  - Fatigue [Unknown]
  - Diarrhoea [Unknown]
  - Neoplasm progression [Unknown]

NARRATIVE: CASE EVENT DATE: 20210713
